FAERS Safety Report 6880129-9 (Version None)
Quarter: 2010Q3

REPORT INFORMATION
  Report Type: 
  Country: None (occurrence: None)
  Receive Date: 20100728
  Receipt Date: 20091214
  Transmission Date: 20110219
  Serious: Yes (Other)
  Sender: FDA-Public Use
  Company Number: US-BRISTOL-MYERS SQUIBB COMPANY-14882955

PATIENT
  Age: 71 Year

DRUGS (1)
  1. SPRYCEL [Suspect]
     Indication: GASTROINTESTINAL STROMAL TUMOUR
     Dosage: FOR APPROXIMATELY TWO MONTHS
     Route: 048
     Dates: start: 20090706

REACTIONS (1)
  - MALIGNANT NEOPLASM PROGRESSION [None]
